FAERS Safety Report 15129502 (Version 2)
Quarter: 2018Q3

REPORT INFORMATION
  Report Type: Spontaneous
  Country: US (occurrence: US)
  Receive Date: 20180711
  Receipt Date: 20180808
  Transmission Date: 20181010
  Serious: Yes (Other)
  Sender: FDA-Public Use
  Company Number: US-APOTEX-2018AP016739

PATIENT
  Sex: Female

DRUGS (1)
  1. FLUTICASONE PROPIONATE NASAL SPRAY USP [Suspect]
     Active Substance: FLUTICASONE PROPIONATE
     Indication: PRODUCT USED FOR UNKNOWN INDICATION
     Dosage: UNK, DAILY
     Route: 045

REACTIONS (5)
  - Sinusitis [Recovering/Resolving]
  - Eye irritation [Not Recovered/Not Resolved]
  - Removal of foreign body from eye [Unknown]
  - Product contamination physical [Unknown]
  - Secretion discharge [Recovering/Resolving]
